FAERS Safety Report 9055202 (Version 2)
Quarter: 2013Q1

REPORT INFORMATION
  Report Type: Spontaneous
  Country: US (occurrence: US)
  Receive Date: 20130206
  Receipt Date: 20130227
  Transmission Date: 20140127
  Serious: No
  Sender: FDA-Public Use
  Company Number: US-PFIZER INC-2013044329

PATIENT
  Age: 29 Year
  Sex: Female

DRUGS (1)
  1. ADVIL PM [Suspect]
     Dosage: TWO TABLETS, UNK
     Dates: start: 201301, end: 2013

REACTIONS (2)
  - Hypoaesthesia [Recovered/Resolved]
  - Hypoaesthesia oral [Recovered/Resolved]
